FAERS Safety Report 6849684-9 (Version None)
Quarter: 2010Q3

REPORT INFORMATION
  Report Type: 
  Country: None (occurrence: None)
  Receive Date: 20100716
  Receipt Date: 20071001
  Transmission Date: 20110219
  Serious: No
  Sender: FDA-Public Use
  Company Number: US-PFIZER INC-2007083568

PATIENT
  Sex: Female
  Weight: 65.8 kg

DRUGS (13)
  1. CHANTIX [Suspect]
     Indication: SMOKING CESSATION THERAPY
     Route: 048
     Dates: start: 20070927
  2. METHADONE HCL [Concomitant]
  3. LEVOTHYROXINE SODIUM [Concomitant]
  4. PREMARIN [Concomitant]
  5. EFFEXOR [Concomitant]
  6. VALIUM [Concomitant]
  7. NEURONTIN [Concomitant]
  8. AMITRIPTYLINE HYDROCHLORIDE [Concomitant]
  9. BACLOFEN [Concomitant]
  10. RANITIDINE [Concomitant]
  11. HYDROCHLOROTHIAZIDE [Concomitant]
  12. ACETYLSALICYLIC ACID [Concomitant]
  13. POTASSIUM CHLORIDE [Concomitant]

REACTIONS (4)
  - AGITATION [None]
  - ENERGY INCREASED [None]
  - HEART RATE INCREASED [None]
  - IRRITABILITY [None]
